FAERS Safety Report 8145016-7 (Version None)
Quarter: 2012Q1

REPORT INFORMATION
  Report Type: 
  Country: None (occurrence: None)
  Receive Date: 20120217
  Receipt Date: 20120208
  Transmission Date: 20120608
  Serious: Yes (Other)
  Sender: FDA-Public Use
  Company Number: PHHY2012JP012733

PATIENT
  Age: 35 Year
  Sex: Female

DRUGS (1)
  1. NEORAL [Suspect]
     Indication: APLASTIC ANAEMIA
     Dosage: 200 MG, UNK
     Route: 048

REACTIONS (3)
  - APLASTIC ANAEMIA [None]
  - CONDITION AGGRAVATED [None]
  - IMMUNOSUPPRESSANT DRUG LEVEL DECREASED [None]
